FAERS Safety Report 20882096 (Version 1)
Quarter: 2022Q2

REPORT INFORMATION
  Report Type: Report from Study
  Country: AR (occurrence: AR)
  Receive Date: 20220527
  Receipt Date: 20220527
  Transmission Date: 20220721
  Serious: Yes (Other)
  Sender: FDA-Public Use
  Company Number: AR-BRISTOL-MYERS SQUIBB COMPANY-2022-046827

PATIENT
  Age: 74 Year
  Sex: Male

DRUGS (2)
  1. ELIQUIS [Suspect]
     Active Substance: APIXABAN
     Indication: Cerebrovascular accident prophylaxis
     Dates: start: 20220309, end: 20220510
  2. ELIQUIS [Suspect]
     Active Substance: APIXABAN

REACTIONS (1)
  - Cardiac disorder [Unknown]
